FAERS Safety Report 16880112 (Version 1)
Quarter: 2019Q4

REPORT INFORMATION
  Report Type: Spontaneous
  Country: JP (occurrence: JP)
  Receive Date: 20191003
  Receipt Date: 20191003
  Transmission Date: 20200122
  Serious: Yes (Hospitalization)
  Sender: FDA-Public Use
  Company Number: JP-DSJP-DSJ-2019-125869

PATIENT

DRUGS (36)
  1. DOXAZOSIN [Concomitant]
     Active Substance: DOXAZOSIN MESYLATE
     Dosage: 3 MG, BID
     Route: 065
     Dates: start: 20190512, end: 20190513
  2. TRAMAZOLINE                        /00083702/ [Concomitant]
     Dosage: 1 DF, QD
     Route: 045
  3. GLIMEPIRIDE. [Concomitant]
     Active Substance: GLIMEPIRIDE
     Dosage: 1 MG, QD
     Route: 065
     Dates: start: 20190512, end: 20190513
  4. PIOGLITAZONE                       /01460202/ [Concomitant]
     Active Substance: PIOGLITAZONE HYDROCHLORIDE
     Dosage: 30 MG, QD
     Route: 065
     Dates: start: 20190512
  5. CATAPRES                           /00171102/ [Concomitant]
     Dosage: 150 UG, QD
     Route: 065
     Dates: start: 20190528
  6. TENORMIN [Concomitant]
     Active Substance: ATENOLOL
     Dosage: 50 MG, BID
     Route: 065
     Dates: end: 20190527
  7. TRAMAZOLINE                        /00083702/ [Concomitant]
     Dosage: 1 DF, QD
     Route: 045
  8. BELSOMRA [Concomitant]
     Active Substance: SUVOREXANT
     Dosage: 20 MG, QD
     Route: 065
     Dates: end: 20190525
  9. AMLODIPINE                         /00972402/ [Concomitant]
     Active Substance: AMLODIPINE BESYLATE
     Dosage: 2.5 MG, BID
     Route: 065
     Dates: start: 20190513, end: 20190513
  10. AMLODIPINE                         /00972402/ [Concomitant]
     Active Substance: AMLODIPINE BESYLATE
     Dosage: 5 MG, BID
     Route: 065
     Dates: start: 20190514
  11. NIFEDIPINE. [Concomitant]
     Active Substance: NIFEDIPINE
     Dosage: 20 MG, BID
     Route: 065
     Dates: end: 20190527
  12. TRAMAZOLINE                        /00083702/ [Concomitant]
     Dosage: 1 DF, TID
     Route: 045
  13. MIYA-BM [Concomitant]
     Active Substance: CLOSTRIDIUM BUTYRICUM SPORES STRAIN M-55
     Dosage: 20 MG, TID
     Route: 065
  14. NIFEDIPINE. [Concomitant]
     Active Substance: NIFEDIPINE
     Dosage: 20 MG, QD
     Route: 065
     Dates: start: 20190528
  15. LANSOPRAZOLE. [Concomitant]
     Active Substance: LANSOPRAZOLE
     Dosage: 15 MG, QD
     Route: 065
  16. TRAMAZOLINE                        /00083702/ [Concomitant]
     Dosage: 1 DF, QD
     Route: 045
     Dates: start: 20190516
  17. CALONAL [Concomitant]
     Active Substance: ACETAMINOPHEN
     Dosage: 300 MG, AS NEEDED
     Route: 065
  18. OLMESARTAN OD TABLETS ?DSEP? [Suspect]
     Active Substance: OLMESARTAN MEDOXOMIL
     Indication: HYPERTENSION
     Dosage: 20 MG, BID
     Route: 048
     Dates: start: 20190518, end: 20190520
  19. CATAPRES                           /00171102/ [Concomitant]
     Dosage: 150 UG, TID
     Route: 065
     Dates: end: 20190527
  20. TRAZENTA [Concomitant]
     Active Substance: LINAGLIPTIN
     Dosage: 5 MG, QD
     Route: 065
     Dates: start: 20190511
  21. TRAMAZOLINE                        /00083702/ [Concomitant]
     Dosage: 1 DF, TID
     Route: 045
  22. MAGNESIUM OXIDE. [Concomitant]
     Active Substance: MAGNESIUM OXIDE
     Dosage: 330 MG, TID
     Route: 065
  23. MS ONSHIPPU [Concomitant]
     Active Substance: CAMPHOR\CAPSICUM\METHYL SALICYLATE
     Dosage: UNK, QD
     Route: 065
  24. LUNESTA [Concomitant]
     Active Substance: ESZOPICLONE
     Dosage: UNK
     Route: 065
  25. DOXAZOSIN [Concomitant]
     Active Substance: DOXAZOSIN MESYLATE
     Dosage: 3 MG, QD
     Route: 065
     Dates: start: 20190514
  26. SAMSCA [Concomitant]
     Active Substance: TOLVAPTAN
     Dosage: 7.5 MG, QD
     Route: 065
     Dates: end: 20190510
  27. TRAMAZOLINE                        /00083702/ [Concomitant]
     Dosage: 1 DF, BID
     Route: 045
  28. OLMESARTAN OD TABLETS ?DSEP? [Suspect]
     Active Substance: OLMESARTAN MEDOXOMIL
     Indication: AORTIC DISSECTION
     Dosage: 20 MG, QD
     Route: 048
     Dates: start: 20190517, end: 20190517
  29. DOXAZOSIN [Concomitant]
     Active Substance: DOXAZOSIN MESYLATE
     Dosage: 2 MG, BID
     Route: 065
     Dates: start: 20190511, end: 20190511
  30. INTAL [Concomitant]
     Active Substance: CROMOLYN SODIUM
     Dosage: UNK, 6 TMS EVERY 1D
     Route: 065
  31. MAGNESIUM OXIDE. [Concomitant]
     Active Substance: MAGNESIUM OXIDE
     Dosage: 330 MG, QD
     Route: 065
  32. DOXAZOSIN [Concomitant]
     Active Substance: DOXAZOSIN MESYLATE
     Dosage: 2 MG, QD
     Route: 065
     Dates: end: 20190510
  33. GLIMEPIRIDE. [Concomitant]
     Active Substance: GLIMEPIRIDE
     Dosage: 2 MG, QD
     Route: 065
     Dates: start: 20190514
  34. TENORMIN [Concomitant]
     Active Substance: ATENOLOL
     Dosage: 50 MG, QD
     Route: 065
     Dates: start: 20190528
  35. TRAMAZOLINE                        /00083702/ [Concomitant]
     Dosage: 1 DF, QD
     Route: 045
  36. SODIUM PICOSULFATE JG [Concomitant]
     Dosage: UNK
     Route: 065

REACTIONS (1)
  - Nephropathy toxic [Not Recovered/Not Resolved]

NARRATIVE: CASE EVENT DATE: 20190520
